FAERS Safety Report 7528072-6 (Version None)
Quarter: 2011Q2

REPORT INFORMATION
  Report Type: 
  Country: None (occurrence: None)
  Receive Date: 20110607
  Receipt Date: 20110124
  Transmission Date: 20111010
  Serious: Yes (Other)
  Sender: FDA-Public Use
  Company Number: US-BAYER-201037736NA

PATIENT
  Age: 27 Year
  Sex: Female
  Weight: 86.168 kg

DRUGS (14)
  1. IBUPROFEN [Concomitant]
     Dosage: 600 MG, QID
     Route: 048
     Dates: start: 20060101
  2. LEVOTHYROXINE SODIUM [Concomitant]
     Dosage: 0.025 MG, QD
     Route: 048
  3. ZOLOFT [Concomitant]
  4. YASMIN [Suspect]
     Indication: ACNE
     Dosage: UNK
  5. DROSPIRENONE AND ETHINYL ESTRADIOL [Suspect]
     Indication: ACNE
     Dosage: UNK
  6. MEDROXYPROGESTERONE [Concomitant]
     Dosage: 10 MG, QD
  7. YAZ [Suspect]
     Indication: ACNE
     Dosage: UNK
  8. MEDICATION FOR THYROID PROBLEMS [Concomitant]
     Dosage: UNK
     Dates: start: 20060101
  9. IBUPROFEN [Concomitant]
     Dosage: 600 MG, QID
     Route: 048
     Dates: start: 20071107
  10. IBUPROFEN [Concomitant]
     Dosage: 600 MG, QID
     Route: 048
     Dates: start: 20090626
  11. METFORMIN HCL [Concomitant]
     Indication: DIABETES MELLITUS
     Dosage: UNK
     Dates: start: 20050101, end: 20060101
  12. WELLBUTRIN XL [Concomitant]
     Dosage: 150 MG, QD
     Route: 048
  13. METFORMIN HCL [Concomitant]
  14. NAPROXEN [Concomitant]
     Dosage: 500 MG, BID
     Route: 048
     Dates: start: 20090924

REACTIONS (5)
  - GALLBLADDER DISORDER [None]
  - INJURY [None]
  - CHOLECYSTITIS CHRONIC [None]
  - PAIN [None]
  - CHOLECYSTITIS [None]
